FAERS Safety Report 24245024 (Version 1)
Quarter: 2024Q3

REPORT INFORMATION
  Report Type: Spontaneous
  Country: US (occurrence: US)
  Receive Date: 20240823
  Receipt Date: 20240823
  Transmission Date: 20241016
  Serious: Yes (Other)
  Sender: REGENERON
  Company Number: US-REGENERON PHARMACEUTICALS, INC.-2024-114800

PATIENT
  Sex: Male

DRUGS (3)
  1. EYLEA HD [Suspect]
     Active Substance: AFLIBERCEPT
     Indication: Neovascular age-related macular degeneration
     Dosage: 8MG, IN LEFT EYE, FORMULATION: HD (VIAL)
     Dates: start: 202402, end: 202402
  2. EYLEA HD [Suspect]
     Active Substance: AFLIBERCEPT
     Dosage: 8MG, IN LEFT EYE, FORMULATION: HD (VIAL)
     Dates: start: 202403, end: 202403
  3. EYLEA HD [Suspect]
     Active Substance: AFLIBERCEPT
     Dosage: 8MG, IN LEFT EYE, FORMULATION: HD (VIAL)
     Dates: start: 202404, end: 202404

REACTIONS (4)
  - Neovascular age-related macular degeneration [Unknown]
  - Condition aggravated [Unknown]
  - Cognitive disorder [Unknown]
  - Visual impairment [Unknown]

NARRATIVE: CASE EVENT DATE: 20240101
